FAERS Safety Report 18168947 (Version 8)
Quarter: 2022Q1

REPORT INFORMATION
  Report Type: Report from Study
  Country: US (occurrence: US)
  Receive Date: 20200818
  Receipt Date: 20220125
  Transmission Date: 20220423
  Serious: Yes (Death, Hospitalization, Other)
  Sender: FDA-Public Use
  Company Number: US-GILEAD-2020-0467209

PATIENT
  Age: 49 Year
  Sex: Female
  Weight: 52.7 kg

DRUGS (5)
  1. AXICABTAGENE CILOLEUCEL [Suspect]
     Active Substance: AXICABTAGENE CILOLEUCEL
     Indication: Diffuse large B-cell lymphoma
     Dosage: UNK
     Route: 042
     Dates: start: 20200429, end: 20200429
  2. CYCLOPHOSPHAMIDE [Suspect]
     Active Substance: CYCLOPHOSPHAMIDE
     Indication: Bone marrow conditioning regimen
     Dosage: ^500^, UNK
     Route: 042
     Dates: start: 20200424, end: 20200426
  3. FLUDARABINE [Suspect]
     Active Substance: FLUDARABINE PHOSPHATE
     Indication: Bone marrow conditioning regimen
     Dosage: ^30^, UNK
     Route: 042
     Dates: start: 20200424, end: 20200426
  4. GEMCITABINE;OXALIPLATIN;RITUXIMAB [Concomitant]
     Dosage: UNK
     Dates: start: 20200406, end: 20200406
  5. DILAUDID [Concomitant]
     Active Substance: HYDROMORPHONE HYDROCHLORIDE
     Dosage: 3-4 DOSES A DAY, PRN

REACTIONS (3)
  - Urinary tract obstruction [Recovered/Resolved]
  - B-cell lymphoma [Fatal]
  - Pain in extremity [Recovered/Resolved]

NARRATIVE: CASE EVENT DATE: 20200509
